FAERS Safety Report 9625733 (Version 1)
Quarter: 2013Q4

REPORT INFORMATION
  Report Type: Spontaneous
  Country: BR (occurrence: BR)
  Receive Date: 20131016
  Receipt Date: 20131016
  Transmission Date: 20140711
  Serious: Yes (Hospitalization)
  Sender: FDA-Public Use
  Company Number: BR-SA-2013SA101864

PATIENT
  Sex: Male
  Weight: 90 kg

DRUGS (1)
  1. LANTUS [Suspect]
     Indication: TYPE 2 DIABETES MELLITUS
     Dosage: FREQ: QAM
     Route: 058
     Dates: start: 2005

REACTIONS (1)
  - Localised infection [Recovering/Resolving]
